FAERS Safety Report 4704806-0 (Version None)
Quarter: 2005Q3

REPORT INFORMATION
  Report Type: 
  Country: None (occurrence: None)
  Receive Date: 20050701
  Receipt Date: 20050623
  Transmission Date: 20060218
  Serious: Yes (Disabling)
  Sender: FDA-Public Use
  Company Number: 2005PK01101

PATIENT
  Age: 78 Year
  Sex: Female

DRUGS (4)
  1. ARIMIDEX [Suspect]
     Indication: BREAST CANCER
     Dates: start: 20030101
  2. ASPIRIN [Concomitant]
  3. COSAAR PLUS [Concomitant]
  4. PADMA [Concomitant]

REACTIONS (2)
  - CEREBROVASCULAR DISORDER [None]
  - PSEUDOBULBAR PALSY [None]
